FAERS Safety Report 23436720 (Version 3)
Quarter: 2024Q2

REPORT INFORMATION
  Report Type: Spontaneous
  Country: JP (occurrence: JP)
  Receive Date: 20240124
  Receipt Date: 20240402
  Transmission Date: 20240716
  Serious: Yes (Other)
  Sender: FDA-Public Use
  Company Number: JP-MSD-M2024-01861

PATIENT
  Age: 7 Decade
  Sex: Female

DRUGS (6)
  1. KEYTRUDA [Suspect]
     Active Substance: PEMBROLIZUMAB
     Indication: Triple negative breast cancer
     Dosage: 200 MILLIGRAM, Q3W
     Route: 041
     Dates: start: 20231228, end: 2024
  2. CARBOPLATIN [Suspect]
     Active Substance: CARBOPLATIN
     Dosage: UNK
     Route: 065
     Dates: start: 20231228
  3. CARBOPLATIN [Suspect]
     Active Substance: CARBOPLATIN
     Dosage: UNK
     Route: 065
     Dates: start: 20240125, end: 20240125
  4. CARBOPLATIN [Suspect]
     Active Substance: CARBOPLATIN
     Dosage: ONE-STEP DOSE REDUCTION
     Route: 065
     Dates: start: 20240201, end: 2024
  5. PACLITAXEL [Suspect]
     Active Substance: PACLITAXEL
     Dosage: UNK
     Route: 065
     Dates: start: 20231228, end: 20240125
  6. PACLITAXEL [Suspect]
     Active Substance: PACLITAXEL
     Dosage: ONE-STEP DOSE REDUCTION
     Route: 065
     Dates: start: 20240201, end: 2024

REACTIONS (3)
  - Neutropenia [Unknown]
  - Constipation [Not Recovered/Not Resolved]
  - Rash [Recovering/Resolving]

NARRATIVE: CASE EVENT DATE: 20240101
